FAERS Safety Report 19458700 (Version 1)
Quarter: 2021Q2

REPORT INFORMATION
  Report Type: Spontaneous
  Country: US (occurrence: US)
  Receive Date: 20210625
  Receipt Date: 20210625
  Transmission Date: 20210717
  Serious: Yes (Hospitalization)
  Sender: FDA-Public Use
  Company Number: None

PATIENT
  Age: 67 Year
  Sex: Female

DRUGS (13)
  1. AMOXICILLIN CLAVULNATE [Concomitant]
  2. ALBUTEROL. [Concomitant]
     Active Substance: ALBUTEROL
  3. ANORO ELLIPT [Concomitant]
  4. ESCITALOPRAM [Concomitant]
     Active Substance: ESCITALOPRAM OXALATE
  5. VITAMIN D3 [Concomitant]
     Active Substance: CHOLECALCIFEROL
  6. OXYCODONE [Concomitant]
     Active Substance: OXYCODONE
  7. MONTELUKAST [Concomitant]
     Active Substance: MONTELUKAST SODIUM
  8. AMBRISENTAN [Suspect]
     Active Substance: AMBRISENTAN
     Indication: PULMONARY HYPERTENSION
     Route: 048
     Dates: start: 20210513
  9. ATORVASTATIN [Concomitant]
     Active Substance: ATORVASTATIN
  10. FUROSEMIDE. [Concomitant]
     Active Substance: FUROSEMIDE
  11. SILDENAFIL. [Concomitant]
     Active Substance: SILDENAFIL
  12. LORAZEPAM. [Concomitant]
     Active Substance: LORAZEPAM
  13. IPRATROPIUM [Concomitant]
     Active Substance: IPRATROPIUM

REACTIONS (2)
  - Pulmonary arterial hypertension [None]
  - Disease complication [None]

NARRATIVE: CASE EVENT DATE: 20210604
